FAERS Safety Report 4726512-9 (Version None)
Quarter: 2005Q3

REPORT INFORMATION
  Report Type: 
  Country: None (occurrence: None)
  Receive Date: 20050726
  Receipt Date: 20050713
  Transmission Date: 20060218
  Serious: Yes (Death, Other)
  Sender: FDA-Public Use
  Company Number: 2005101898

PATIENT
  Age: 80 Year
  Sex: Female
  Weight: 61.9 kg

DRUGS (14)
  1. FLUCAM (AMPIROXICAM) [Suspect]
     Indication: RHEUMATOID ARTHRITIS
     Dosage: 27 MG (1 D), ORAL
     Route: 048
     Dates: start: 20020201
  2. REMICADE [Suspect]
     Indication: RHEUMATOID ARTHRITIS
     Dosage: 3 MG/KG, INTRAVENOUS
     Route: 042
     Dates: start: 20050328
  3. PREDNISOLONE [Suspect]
     Indication: RHEUMATOID ARTHRITIS
     Dosage: 5 MG, ORAL
     Route: 048
     Dates: start: 20020201
  4. RHEUMATREX [Suspect]
     Indication: RHEUMATOID ARTHRITIS
     Dosage: 6 MG, ORAL
     Route: 048
     Dates: start: 20050212
  5. CEFAZOLIN SODIUM [Suspect]
     Indication: INFECTION
     Dosage: 1 GRAM (1 D), INTRAVENOUS
     Route: 042
     Dates: start: 20050423
  6. CEFOTAXIME SODIUM [Suspect]
     Indication: INFECTION
     Dosage: 1, INTRAVENOUS
     Route: 042
     Dates: start: 20050423
  7. RIMATIL (BUCILLAMINE) [Concomitant]
  8. MECOBALAMIN (MECOBALAMIN) [Concomitant]
  9. NEUROTROPIN (ORGAN LYSATE, STANDARDIZED) [Concomitant]
  10. PRORENAL (LIMAPROST) [Concomitant]
  11. ALENDRONATE SODIUM [Concomitant]
  12. ROCALTROL [Concomitant]
  13. ALL OTHER THERAPEUTIC PRODUCTS (ALL OTHER THERAPEUTIC PRODUCTS) [Concomitant]
  14. ALPROSTADIL [Concomitant]

REACTIONS (17)
  - ARRHYTHMIA [None]
  - ASTHENIA [None]
  - BLOOD PRESSURE DECREASED [None]
  - BONE MARROW DEPRESSION [None]
  - C-REACTIVE PROTEIN INCREASED [None]
  - CARDIAC ARREST [None]
  - DEPRESSED LEVEL OF CONSCIOUSNESS [None]
  - DRUG TOXICITY [None]
  - INFECTION [None]
  - MULTI-ORGAN FAILURE [None]
  - NO THERAPEUTIC RESPONSE [None]
  - PANCYTOPENIA [None]
  - RESPIRATORY FAILURE [None]
  - SPINAL COMPRESSION FRACTURE [None]
  - SPINAL CORD COMPRESSION [None]
  - TENDON DISORDER [None]
  - URINE OUTPUT DECREASED [None]
